FAERS Safety Report 9827391 (Version 1)
Quarter: 2014Q1

REPORT INFORMATION
  Report Type: Spontaneous
  Country: ES (occurrence: ES)
  Receive Date: 20140117
  Receipt Date: 20140117
  Transmission Date: 20141002
  Serious: Yes (Hospitalization)
  Sender: FDA-Public Use
  Company Number: ES-009507513-1401ESP006666

PATIENT
  Age: 76 Year
  Sex: Female

DRUGS (12)
  1. TRYPTIZOL 10 MG [Suspect]
     Indication: PRODUCT USED FOR UNKNOWN INDICATION
     Dosage: UNK
     Route: 065
     Dates: start: 20120201, end: 20130128
  2. ZONISAMIDE [Suspect]
     Indication: PRODUCT USED FOR UNKNOWN INDICATION
     Dosage: UNK
     Route: 065
     Dates: start: 20100101, end: 20130128
  3. LACTULOSE [Concomitant]
     Dosage: UNK
  4. LANSOPRAZOLE [Concomitant]
     Dosage: UNK
  5. METFORMIN [Concomitant]
     Dosage: UNK
  6. SITAGLIPTIN PHOSPHATE [Concomitant]
     Dosage: UNK
     Route: 048
  7. OXCARBAZEPINE [Concomitant]
     Dosage: UNK
  8. PENTOXIFYLLINE [Concomitant]
     Dosage: UNK
  9. TORSEMIDE [Concomitant]
     Dosage: UNK
  10. VALSARTAN [Concomitant]
     Dosage: UNK
  11. ASPIRIN [Concomitant]
     Dosage: UNK
  12. BACLOFEN [Concomitant]
     Dosage: UNK

REACTIONS (4)
  - Cellulitis [Recovered/Resolved]
  - Pain in extremity [Recovered/Resolved]
  - Dyspnoea exertional [Recovered/Resolved]
  - Oedema [Recovered/Resolved]
